FAERS Safety Report 6275841-9 (Version None)
Quarter: 2009Q3

REPORT INFORMATION
  Report Type: 
  Country: None (occurrence: None)
  Receive Date: 20090721
  Receipt Date: 20090710
  Transmission Date: 20100115
  Serious: Yes (Other)
  Sender: FDA-Public Use
  Company Number: JP-GENENTECH-287083

PATIENT
  Sex: Female

DRUGS (3)
  1. RANIBIZUMAB [Suspect]
     Indication: MACULAR DEGENERATION
     Dosage: 0.05 ML, UNK
     Route: 031
     Dates: start: 20090327
  2. RANIBIZUMAB [Suspect]
     Dosage: 0.05 ML, UNK
     Route: 031
     Dates: start: 20090424
  3. RANIBIZUMAB [Suspect]
     Dosage: 0.05 ML, UNK
     Route: 031
     Dates: start: 20090522

REACTIONS (2)
  - CATARACT [None]
  - CATARACT OPERATION [None]
